FAERS Safety Report 25533702 (Version 4)
Quarter: 2025Q3

REPORT INFORMATION
  Report Type: Spontaneous
  Country: US (occurrence: US)
  Receive Date: 20250709
  Receipt Date: 20250821
  Transmission Date: 20251021
  Serious: Yes (Hospitalization, Other)
  Sender: SANOFI AVENTIS
  Company Number: US-SA-2025SA190746

PATIENT
  Age: 64 Year
  Sex: Male
  Weight: 70.45 kg

DRUGS (24)
  1. FABRAZYME [Suspect]
     Active Substance: AGALSIDASE BETA
     Indication: Fabry^s disease
     Dosage: 85 MG, QW
     Route: 042
     Dates: start: 200802, end: 2025
  2. FABRAZYME [Suspect]
     Active Substance: AGALSIDASE BETA
     Dosage: 85 MG, QOW
     Route: 042
     Dates: start: 2025, end: 2025
  3. SODIUM CHLORIDE [Concomitant]
     Active Substance: SODIUM CHLORIDE
  4. EPINEPHRINE [Concomitant]
     Active Substance: EPINEPHRINE
  5. STERILE WATER [Concomitant]
     Active Substance: WATER
  6. FLOMAX [Concomitant]
     Active Substance: TAMSULOSIN HYDROCHLORIDE
  7. COLACE [Concomitant]
     Active Substance: DOCUSATE SODIUM
  8. CARAFATE [Concomitant]
     Active Substance: SUCRALFATE
  9. ADVAIR HFA [Concomitant]
     Active Substance: FLUTICASONE PROPIONATE\SALMETEROL XINAFOATE
  10. PERCOCET [Concomitant]
     Active Substance: ACETAMINOPHEN\OXYCODONE HYDROCHLORIDE
  11. SODIUM CHLORIDE [Concomitant]
     Active Substance: SODIUM CHLORIDE
  12. LIVALO [Concomitant]
     Active Substance: PITAVASTATIN CALCIUM
  13. VORICONAZOLE [Concomitant]
     Active Substance: VORICONAZOLE
  14. ENTRESTO [Concomitant]
     Active Substance: SACUBITRIL\VALSARTAN
  15. AVODART [Concomitant]
     Active Substance: DUTASTERIDE
  16. NORVASC [Concomitant]
     Active Substance: AMLODIPINE BESYLATE
  17. PROAIR HFA [Concomitant]
     Active Substance: ALBUTEROL SULFATE
  18. PREDNISONE [Concomitant]
     Active Substance: PREDNISONE
  19. TEGRETOL [Concomitant]
     Active Substance: CARBAMAZEPINE
  20. PROGRAF [Concomitant]
     Active Substance: TACROLIMUS
  21. VITAMIN D3 [Concomitant]
     Active Substance: CHOLECALCIFEROL
  22. XYZAL [Concomitant]
     Active Substance: LEVOCETIRIZINE DIHYDROCHLORIDE
  23. TORSEMIDE [Concomitant]
     Active Substance: TORSEMIDE
  24. COZAAR [Concomitant]
     Active Substance: LOSARTAN POTASSIUM

REACTIONS (5)
  - Complications of transplanted kidney [Unknown]
  - Pneumonia [Unknown]
  - COVID-19 [Unknown]
  - Oedema peripheral [Unknown]
  - Inappropriate schedule of product administration [Unknown]

NARRATIVE: CASE EVENT DATE: 20080201
